FAERS Safety Report 11604822 (Version 1)
Quarter: 2015Q3

REPORT INFORMATION
  Report Type: Spontaneous
  Country: US (occurrence: US)
  Receive Date: 20150916
  Receipt Date: 20150916
  Transmission Date: 20151125
  Serious: No
  Sender: FDA-Public Use
  Company Number: US-ELI_LILLY_AND_COMPANY-US201404007704

PATIENT
  Sex: Female

DRUGS (4)
  1. HUMALOG MIX50/50 [Suspect]
     Active Substance: INSULIN LISPRO
     Indication: DIABETES MELLITUS
     Dosage: 60 U, EACH MORNING
     Route: 065
     Dates: start: 1994
  2. HUMALOG MIX50/50 [Suspect]
     Active Substance: INSULIN LISPRO
     Dosage: 60 U, EACH MORNING
     Route: 065
     Dates: start: 1994
  3. HUMALOG MIX50/50 [Suspect]
     Active Substance: INSULIN LISPRO
     Dosage: 40 U, EACH EVENING
     Route: 065
     Dates: start: 1994
  4. HUMALOG MIX50/50 [Suspect]
     Active Substance: INSULIN LISPRO
     Dosage: 40 U, EACH EVENING
     Route: 065
     Dates: start: 1994

REACTIONS (6)
  - Hyperhidrosis [Unknown]
  - Presyncope [Unknown]
  - Contusion [Unknown]
  - Underdose [Unknown]
  - Limb discomfort [Unknown]
  - Visual acuity reduced [Unknown]
